FAERS Safety Report 9789956 (Version 1)
Quarter: 2013Q4

REPORT INFORMATION
  Report Type: Spontaneous
  Country: GB (occurrence: None)
  Receive Date: 20131230
  Receipt Date: 20131230
  Transmission Date: 20140711
  Serious: No
  Sender: FDA-Public Use
  Company Number: None

PATIENT
  Age: 36 Year
  Sex: Female
  Weight: 103.42 kg

DRUGS (4)
  1. CIPROFLOXACIN [Suspect]
     Indication: ESCHERICHIA INFECTION
     Dosage: 1 TABLET
     Route: 048
     Dates: start: 20131017, end: 20131126
  2. CIPROFLOXACIN [Suspect]
     Indication: ABDOMINAL INFECTION
     Dosage: 1 TABLET
     Route: 048
     Dates: start: 20131017, end: 20131126
  3. CIPROFLOXACIN [Suspect]
     Indication: OOPHORITIS
     Dosage: 1 TABLET
     Route: 048
     Dates: start: 20131017, end: 20131126
  4. CIPROFLOXACIN [Suspect]
     Indication: SALPINGITIS
     Dosage: 1 TABLET
     Route: 048
     Dates: start: 20131017, end: 20131126

REACTIONS (1)
  - Alopecia [None]
